FAERS Safety Report 8389901 (Version 2)
Quarter: 2014Q2

REPORT INFORMATION
  Report Type: Spontaneous
  Country: US (occurrence: US)
  Receive Date: 20120203
  Receipt Date: 20140607
  Transmission Date: 20141212
  Serious: Yes (Other)
  Sender: FDA-Public Use
  Company Number: PHEH2012US002417

PATIENT
  Sex: Male

DRUGS (1)
  1. VALTURNA [Suspect]
     Dosage: 1 DF (VALS 320 MG, ALIS300 MG), DAILY
     Dates: start: 2011

REACTIONS (2)
  - Cerebrovascular disorder [Unknown]
  - Transient ischaemic attack [Unknown]
